FAERS Safety Report 7818078-1 (Version None)
Quarter: 2011Q4

REPORT INFORMATION
  Report Type: 
  Country: None (occurrence: None)
  Receive Date: 20111017
  Receipt Date: 20111013
  Transmission Date: 20120403
  Serious: Yes (Death, Hospitalization)
  Sender: FDA-Public Use
  Company Number: BR-ABBOTT-11P-020-0862233-00

PATIENT
  Sex: Female

DRUGS (2)
  1. HUMIRA [Suspect]
     Indication: RHEUMATOID ARTHRITIS
     Dates: end: 20110607
  2. UNSPECIGIED DRUG [Concomitant]
     Indication: PRODUCT USED FOR UNKNOWN INDICATION

REACTIONS (6)
  - ASTHMA [None]
  - LOSS OF CONSCIOUSNESS [None]
  - INFARCTION [None]
  - DYSPNOEA [None]
  - FOOT DEFORMITY [None]
  - FINGER DEFORMITY [None]
